FAERS Safety Report 5003854-3 (Version None)
Quarter: 2006Q2

REPORT INFORMATION
  Report Type: 
  Country: None (occurrence: None)
  Receive Date: 20060515
  Receipt Date: 20060504
  Transmission Date: 20061013
  Serious: Yes (Other)
  Sender: FDA-Public Use
  Company Number: 2006-04-1100

PATIENT
  Sex: Female

DRUGS (4)
  1. TEMODAL [Suspect]
     Dosage: ORAL X 1 CYCLE
     Route: 048
  2. SEPTRA [Suspect]
     Indication: PNEUMOCYSTIS JIROVECI PNEUMONIA
  3. SEPTRA [Suspect]
     Indication: PROPHYLAXIS
  4. RADIATION THERAPY [Concomitant]

REACTIONS (1)
  - HEPATIC FAILURE [None]
